FAERS Safety Report 6981021-1 (Version None)
Quarter: 2010Q3

REPORT INFORMATION
  Report Type: 
  Country: None (occurrence: None)
  Receive Date: 20100914
  Receipt Date: 20100901
  Transmission Date: 20110219
  Serious: Yes (Hospitalization)
  Sender: FDA-Public Use
  Company Number: CA-GENENTECH-296834

PATIENT
  Sex: Female

DRUGS (1)
  1. XOLAIR [Suspect]
     Indication: ASTHMA
     Dosage: 375 MG, Q2W
     Route: 058
     Dates: start: 20080610

REACTIONS (6)
  - ASTHMA [None]
  - COUGH [None]
  - DIARRHOEA [None]
  - INFLUENZA [None]
  - URINARY TRACT INFECTION [None]
  - VAGINAL INFECTION [None]
